FAERS Safety Report 10543189 (Version 2)
Quarter: 2014Q4

REPORT INFORMATION
  Report Type: Spontaneous
  Country: US (occurrence: None)
  Receive Date: 20141010
  Receipt Date: 20141205
  Transmission Date: 20150529
  Serious: Yes (Hospitalization)
  Sender: FDA-Public Use
  Company Number: 163-POMAL-14080289

PATIENT
  Age: 46 Year
  Sex: Male

DRUGS (8)
  1. HYDROCODONE/ACETAMINOPHEN (REMEDEINE) (UNKNOWN) [Concomitant]
  2. FERROUS SULFATE (FERROUS SULFATE) (UNKNOWN) [Concomitant]
  3. NEURONTIN (GABAPENTIN) (UNKNOWN) [Concomitant]
  4. VITAMIN B6 (PYRIDOXINE HYDROCHLORIDE) (UNKNOWN) [Concomitant]
  5. GABAPENTIN (GABAPENTIN) (UNKNOWN) (GABAPENTIN) [Concomitant]
     Active Substance: GABAPENTIN
  6. TRAMADOL HCL (TRAMADOL HYDROCHLORIDE) (UNKNOWN) [Concomitant]
  7. POMALYST [Suspect]
     Active Substance: POMALIDOMIDE
     Indication: PLASMA CELL MYELOMA
     Route: 048
     Dates: start: 20140523
  8. METORNDIAZOLE (METRONDIAZOLE) [Concomitant]

REACTIONS (1)
  - Pneumonia [None]

NARRATIVE: CASE EVENT DATE: 20140729
